FAERS Safety Report 7909005-7 (Version None)
Quarter: 2011Q4

REPORT INFORMATION
  Report Type: 
  Country: None (occurrence: None)
  Receive Date: 20111111
  Receipt Date: 20111107
  Transmission Date: 20120403
  Serious: Yes (Death, Hospitalization)
  Sender: FDA-Public Use
  Company Number: PHHY2011AT94923

PATIENT
  Sex: Female

DRUGS (3)
  1. TASIGNA [Suspect]
     Indication: GASTROINTESTINAL STROMAL TUMOUR
     Dosage: 400 MG, BID
     Dates: start: 20110926, end: 20110930
  2. BUPRENORPHINE [Concomitant]
     Indication: PAIN
  3. PANTOPRAZOLE SODIUM [Concomitant]
     Indication: GASTRITIS
     Dosage: 1 TABLET OF 40 MG DAILY
     Route: 048

REACTIONS (4)
  - NEOPLASM MALIGNANT [None]
  - NEOPLASM PROGRESSION [None]
  - HEPATORENAL SYNDROME [None]
  - METASTASES TO BONE [None]
